FAERS Safety Report 8331652-1 (Version None)
Quarter: 2012Q2

REPORT INFORMATION
  Report Type: 
  Country: None (occurrence: None)
  Receive Date: 20120502
  Receipt Date: 20120131
  Transmission Date: 20120825
  Serious: No
  Sender: FDA-Public Use
  Company Number: US-ASTRAZENECA-2012SE06561

PATIENT
  Age: 74 Year
  Sex: Female
  Weight: 86.2 kg

DRUGS (7)
  1. ABILIFY [Concomitant]
     Indication: DEPRESSION
  2. ENTOCORT EC [Suspect]
     Indication: COLITIS
     Route: 048
     Dates: start: 20110101
  3. ENTOCORT EC [Suspect]
     Route: 048
  4. METHYLPHENIDATE [Concomitant]
     Indication: COGNITIVE DISORDER
  5. NOVOLOG [Concomitant]
     Indication: DIABETES MELLITUS
  6. ABILIFY [Concomitant]
     Indication: FIBROMYALGIA
  7. LEVOXYL [Concomitant]
     Indication: THYROID DISORDER

REACTIONS (2)
  - DIARRHOEA [None]
  - OFF LABEL USE [None]
